FAERS Safety Report 21591396 (Version 1)
Quarter: 2022Q4

REPORT INFORMATION
  Report Type: Spontaneous
  Country: FR (occurrence: FR)
  Receive Date: 20221114
  Receipt Date: 20221114
  Transmission Date: 20230112
  Serious: Yes (Hospitalization)
  Sender: FDA-Public Use
  Company Number: None

PATIENT
  Age: 91 Year
  Sex: Male
  Weight: 75 kg

DRUGS (10)
  1. RISPERDAL [Suspect]
     Active Substance: RISPERIDONE
     Indication: Product used for unknown indication
     Route: 048
     Dates: start: 202210, end: 20221013
  2. RAMIPRIL [Concomitant]
     Active Substance: RAMIPRIL
     Route: 048
  3. CYANOCOBALAMIN [Concomitant]
     Active Substance: CYANOCOBALAMIN
  4. UMECLIDINIUM [Concomitant]
     Active Substance: UMECLIDINIUM
  5. PYGEUM AFRICANUM [Concomitant]
     Route: 048
     Dates: start: 20221013, end: 20221018
  6. TIOTROPIUM [Concomitant]
     Active Substance: TIOTROPIUM
  7. FOLIC ACID [Concomitant]
     Active Substance: FOLIC ACID
  8. ENOXAPARIN SODIUM [Concomitant]
     Active Substance: ENOXAPARIN SODIUM
     Route: 058
     Dates: start: 20221012
  9. ALBUTEROL [Concomitant]
     Active Substance: ALBUTEROL
  10. SABAL SERRULATA [Concomitant]
     Active Substance: SAW PALMETTO
     Route: 048

REACTIONS (2)
  - Hallucination [Recovered/Resolved]
  - Fall [Recovered/Resolved]

NARRATIVE: CASE EVENT DATE: 20221007
